FAERS Safety Report 7781289-8 (Version None)
Quarter: 2011Q3

REPORT INFORMATION
  Report Type: 
  Country: None (occurrence: None)
  Receive Date: 20110923
  Receipt Date: 20110909
  Transmission Date: 20111222
  Serious: No
  Sender: FDA-Public Use
  Company Number: 020045

PATIENT
  Age: 70 Year
  Sex: Male

DRUGS (1)
  1. MACUGEN [Suspect]

REACTIONS (3)
  - PHOTOPHOBIA [None]
  - VISUAL ACUITY REDUCED [None]
  - EYE DISCHARGE [None]
